FAERS Safety Report 22884096 (Version 2)
Quarter: 2023Q4

REPORT INFORMATION
  Report Type: Spontaneous
  Country: US (occurrence: US)
  Receive Date: 20230830
  Receipt Date: 20231120
  Transmission Date: 20240110
  Serious: No
  Sender: FDA-Public Use
  Company Number: US-SA-SAC20230829000124

PATIENT
  Age: 27 Year
  Sex: Male

DRUGS (10)
  1. DUPIXENT [Suspect]
     Active Substance: DUPILUMAB
     Indication: Dermatitis atopic
     Dosage: 300 MG, QOW
     Route: 058
     Dates: start: 20210309
  2. CICLOPIROX [Concomitant]
     Active Substance: CICLOPIROX\TOCOPHEROL
  3. CLOCORTOLONE [Concomitant]
  4. OLOPATADINE [Concomitant]
     Active Substance: OLOPATADINE
  5. PREDNISONE [Concomitant]
     Active Substance: PREDNISONE
  6. TERBINAFINE [Concomitant]
     Active Substance: TERBINAFINE
  7. TRIAMCINOLONE [Concomitant]
     Active Substance: TRIAMCINOLONE
  8. HYDROCORTISONE [Concomitant]
     Active Substance: HYDROCORTISONE
  9. OLOPATADINE [Concomitant]
     Active Substance: OLOPATADINE
  10. AUVI-Q [Concomitant]
     Active Substance: EPINEPHRINE

REACTIONS (4)
  - Sleep disorder [Not Recovered/Not Resolved]
  - Eye irritation [Not Recovered/Not Resolved]
  - Injection site reaction [Unknown]
  - Drug ineffective [Unknown]
